FAERS Safety Report 4483563-X (Version None)
Quarter: 2004Q4

REPORT INFORMATION
  Report Type: 
  Country: None (occurrence: None)
  Receive Date: 20041021
  Receipt Date: 20041021
  Transmission Date: 20050328
  Serious: Yes (Other)
  Sender: FDA-Public Use
  Company Number: None

PATIENT
  Sex: Male
  Weight: 90.7194 kg

DRUGS (1)
  1. CELEBREX [Suspect]
     Dosage: 1 PO Q.D.
     Route: 048
     Dates: start: 20040301, end: 20040901

REACTIONS (2)
  - ASTHENIA [None]
  - BLOOD PRESSURE DECREASED [None]
